FAERS Safety Report 4943766-4 (Version None)
Quarter: 2006Q1

REPORT INFORMATION
  Report Type: 
  Country: None (occurrence: None)
  Receive Date: 20060314
  Receipt Date: 20050912
  Transmission Date: 20060701
  Serious: Yes (Hospitalization)
  Sender: FDA-Public Use
  Company Number: US-MERCK-0509USA01441

PATIENT
  Age: 58 Year
  Sex: Male
  Weight: 107 kg

DRUGS (3)
  1. VIOXX [Suspect]
     Indication: RHEUMATOID ARTHRITIS
     Route: 048
     Dates: start: 20000522, end: 20010819
  2. ZESTORETIC [Concomitant]
     Route: 065
  3. CLONIDINE [Concomitant]
     Route: 065

REACTIONS (7)
  - ARTERIOSCLEROSIS CORONARY ARTERY [None]
  - ATRIAL FIBRILLATION [None]
  - HYPERLIPIDAEMIA [None]
  - MYOCARDIAL INFARCTION [None]
  - OBESITY [None]
  - OEDEMA PERIPHERAL [None]
  - PNEUMOTHORAX [None]
